FAERS Safety Report 8301948-8 (Version None)
Quarter: 2012Q2

REPORT INFORMATION
  Report Type: 
  Country: None (occurrence: None)
  Receive Date: 20120402
  Receipt Date: 20120322
  Transmission Date: 20120825
  Serious: Yes (Other)
  Sender: FDA-Public Use
  Company Number: 2012031722

PATIENT
  Age: 42 Year
  Sex: Female
  Weight: 56.6996 kg

DRUGS (15)
  1. SENSIPAR [Concomitant]
  2. RENVELA (SEVELAMER) [Concomitant]
  3. HIZENTRA [Suspect]
     Indication: IMMUNODEFICIENCY COMMON VARIABLE
     Dosage: (12 G 1X/WEEK, 4 GM (20 ML) ON 4 SITES OVER 1-2 HOURS SUBCUTANEOUS)
     Route: 058
     Dates: start: 20110204
  4. HIZENTRA [Suspect]
     Indication: IMMUNODEFICIENCY COMMON VARIABLE
     Dosage: (12 G 1X/WEEK, 4 GM (20 ML) ON 4 SITES OVER 1-2 HOURS SUBCUTANEOUS)
     Route: 058
     Dates: start: 20120316, end: 20120316
  5. PHOSLO [Concomitant]
  6. MARINOL [Concomitant]
  7. RANITIDINE HYDROCHLORIDE [Concomitant]
  8. OMEPRAZOLE [Concomitant]
  9. PREDNISONE TAB [Concomitant]
  10. IBUPROFEN [Concomitant]
  11. OXYCONTIN [Concomitant]
  12. ACETAMINOPHEN [Concomitant]
  13. SULFASALAZINE [Concomitant]
  14. PERIACTIN [Concomitant]
  15. PERCOCET [Concomitant]

REACTIONS (3)
  - MALAISE [None]
  - PNEUMONIA [None]
  - PRODUCTIVE COUGH [None]
